FAERS Safety Report 22639735 (Version 1)
Quarter: 2023Q2

REPORT INFORMATION
  Report Type: Spontaneous
  Country: GB (occurrence: GB)
  Receive Date: 20230626
  Receipt Date: 20230626
  Transmission Date: 20230721
  Serious: Yes (Other)
  Sender: FDA-Public Use
  Company Number: None

PATIENT
  Age: 30 Year
  Sex: Female
  Weight: 97 kg

DRUGS (12)
  1. DOXYCYCLINE [Suspect]
     Active Substance: DOXYCYCLINE
     Indication: Product used for unknown indication
     Dosage: UNK, TWO NOW THEN ONE DAILY
     Route: 065
     Dates: start: 20230615
  2. BISACODYL [Concomitant]
     Active Substance: BISACODYL
     Indication: Constipation
     Dosage: UNK, QD (ONE OR TWO TO BE TAKEN AT NIGHT)
     Route: 065
     Dates: start: 20221025
  3. CODEINE PHOSPHATE [Concomitant]
     Active Substance: CODEINE PHOSPHATE
     Indication: Pain
     Dosage: UNK, TAKE ONE OR TWO EVERY 4 HOURS
     Route: 065
     Dates: start: 20221025
  4. DOCUSATE SODIUM [Concomitant]
     Active Substance: DOCUSATE SODIUM
     Indication: Constipation
     Dosage: 1 DOSAGE FORM,UP TO FOUR TIMES A DAY
     Route: 065
     Dates: start: 20221025
  5. BUTYLSCOPOLAMINE BROMIDE [Concomitant]
     Active Substance: BUTYLSCOPOLAMINE BROMIDE
     Dosage: UNK, 10-20MG UP TO FOUR TIMES DAILY AS REQUIRED
     Route: 065
     Dates: start: 20221025
  6. LAMOTRIGINE [Concomitant]
     Active Substance: LAMOTRIGINE
     Dosage: 1 DOSAGE FORM, BID AS DIRECTED BY PSYCHIATRY TEAM
     Route: 065
     Dates: start: 20221025
  7. LANSOPRAZOLE [Concomitant]
     Active Substance: LANSOPRAZOLE
     Dosage: 1 DOSAGE FORM, BID
     Route: 065
     Dates: start: 20221025
  8. NORTRIPTYLINE [Concomitant]
     Active Substance: NORTRIPTYLINE
     Dosage: 1 DOSAGE FORM, QD (AS DIRECTED AT NIGHT TO HELP CONTROL N.)
     Route: 065
     Dates: start: 20221025
  9. PREGABALIN [Concomitant]
     Active Substance: PREGABALIN
     Dosage: 1 DOSAGE FORM, BID
     Route: 065
     Dates: start: 20221025
  10. PROCYCLIDINE [Concomitant]
     Active Substance: PROCYCLIDINE
     Dosage: 1 DOSAGE FORM, BID
     Route: 065
     Dates: start: 20230413
  11. PROMETHAZINE HYDROCHLORIDE [Concomitant]
     Active Substance: PROMETHAZINE HYDROCHLORIDE
     Dosage: 1 DOSAGE FORM AS NECESSARY, UP TO THREE TIMES DAILY
     Route: 065
     Dates: start: 20230413
  12. QUETIAPINE [Concomitant]
     Active Substance: QUETIAPINE
     Dosage: 1 DOSAGE FORM, QD, AT NIGHT
     Route: 065
     Dates: start: 20230220

REACTIONS (2)
  - Abdominal pain upper [Recovering/Resolving]
  - Vomiting [Recovering/Resolving]
